FAERS Safety Report 8484134-0 (Version None)
Quarter: 2012Q3

REPORT INFORMATION
  Report Type: 
  Country: None (occurrence: None)
  Receive Date: 20120703
  Receipt Date: 20120628
  Transmission Date: 20120928
  Serious: Yes (Other)
  Sender: FDA-Public Use
  Company Number: JP-BAYER-2012-035704

PATIENT
  Age: 68 Year
  Sex: Female
  Weight: 46 kg

DRUGS (14)
  1. CISPLATIN [Concomitant]
     Indication: REGIONAL CHEMOTHERAPY
     Dosage: UNK
     Route: 013
     Dates: start: 20110101, end: 20110101
  2. SORAFENIB (RAF KINASE INHIBITOR) [Suspect]
     Dosage: 200 MG, QD
     Route: 048
     Dates: start: 20120106
  3. CODEINE PHOSPHATE [Concomitant]
     Dosage: DAILY DOSE 2 G
     Route: 048
     Dates: start: 20101111
  4. FLUOROURACIL [Concomitant]
     Dosage: UNK
     Route: 013
     Dates: start: 20110101, end: 20110101
  5. CISPLATIN [Concomitant]
     Dosage: UNK
     Route: 013
     Dates: start: 20111216, end: 20111216
  6. UREPEARL [Concomitant]
     Dosage: DAILY DOSE 2.8 G
     Route: 061
     Dates: start: 20101111
  7. FLUOROURACIL [Concomitant]
     Dosage: UNK
     Route: 013
     Dates: start: 20111216, end: 20111216
  8. PYDOXAL [Concomitant]
     Dosage: DAILY DOSE 60 MG
     Route: 048
     Dates: start: 20101111
  9. FLUOROURACIL [Concomitant]
     Indication: REGIONAL CHEMOTHERAPY
     Dosage: UNK
     Route: 013
     Dates: start: 20111116, end: 20111116
  10. SORAFENIB (RAF KINASE INHIBITOR) [Suspect]
     Indication: HEPATIC NEOPLASM MALIGNANT
     Dosage: 400 MG, QD
     Route: 048
     Dates: start: 20101111, end: 20101124
  11. SORAFENIB (RAF KINASE INHIBITOR) [Suspect]
     Dosage: 200 MG, QD
     Route: 048
     Dates: start: 20101209, end: 20110511
  12. OLMESARTAN MEDOXOMIL [Concomitant]
     Dosage: UNK
     Route: 048
  13. CISPLATIN [Concomitant]
     Dosage: UNK
     Route: 013
     Dates: start: 20111116, end: 20111116
  14. SORAFENIB (RAF KINASE INHIBITOR) [Suspect]
     Dosage: 300 MG, QD
     Route: 048
     Dates: start: 20110512, end: 20111121

REACTIONS (18)
  - GASTRIC ULCER [None]
  - DIARRHOEA [None]
  - ARTHRALGIA [None]
  - BACK PAIN [None]
  - NAUSEA [None]
  - ABDOMINAL PAIN UPPER [None]
  - PALMAR-PLANTAR ERYTHRODYSAESTHESIA SYNDROME [None]
  - VOMITING [None]
  - ASCITES [None]
  - HAEMOGLOBIN DECREASED [None]
  - ALOPECIA [None]
  - PYREXIA [None]
  - CONSTIPATION [None]
  - BLOOD PRESSURE DECREASED [None]
  - HYPERTENSION [None]
  - FATIGUE [None]
  - HEADACHE [None]
  - RASH [None]
